FAERS Safety Report 21562929 (Version 1)
Quarter: 2022Q4

REPORT INFORMATION
  Report Type: Report from Study
  Country: US (occurrence: US)
  Receive Date: 20221107
  Receipt Date: 20221107
  Transmission Date: 20230113
  Serious: No
  Sender: FDA-Public Use
  Company Number: US-ABBVIE-4135086

PATIENT
  Sex: Female

DRUGS (4)
  1. HUMIRA [Suspect]
     Active Substance: ADALIMUMAB
     Indication: Rheumatoid arthritis
     Route: 058
  2. Moderna [Concomitant]
     Indication: COVID-19 immunisation
     Dosage: FREQUENCY 1 IN ONCE?3RD DOSE
     Dates: start: 20211001, end: 20211001
  3. Moderna [Concomitant]
     Indication: COVID-19 immunisation
     Dosage: FREQUENCY 1 IN ONCE?1ST DOSE
     Dates: start: 20210301, end: 20210301
  4. Moderna [Concomitant]
     Indication: COVID-19 immunisation
     Dosage: FREQUENCY 1 IN ONCE?2ND DOSE
     Dates: start: 20210401, end: 20210401

REACTIONS (3)
  - Injection site pruritus [Recovered/Resolved]
  - Injection site irritation [Recovered/Resolved]
  - Injection site erythema [Recovered/Resolved]
